FAERS Safety Report 19416550 (Version 1)
Quarter: 2021Q2

REPORT INFORMATION
  Report Type: Report from Study
  Country: US (occurrence: US)
  Receive Date: 20210614
  Receipt Date: 20210614
  Transmission Date: 20210717
  Serious: Yes (Death, Other)
  Sender: FDA-Public Use
  Company Number: US-PFIZER INC-2021690131

PATIENT
  Age: 39 Year

DRUGS (7)
  1. VINCRISTINE SULFATE. [Suspect]
     Active Substance: VINCRISTINE SULFATE
     Indication: ACUTE LYMPHOCYTIC LEUKAEMIA
     Dosage: 2 MG, CYCLIC FLAT DOSE (ON DAYS 1 AND 8)
  2. CYCLOPHOSPHAMIDE. [Suspect]
     Active Substance: CYCLOPHOSPHAMIDE
     Indication: ACUTE LYMPHOCYTIC LEUKAEMIA
     Dosage: 150 MG/M2, CYCLIC (EVERY 12 HOURS ON DAYS 1?3)
  3. INOTUZUMAB OZOGAMICIN [Suspect]
     Active Substance: INOTUZUMAB OZOGAMICIN
     Indication: ACUTE LYMPHOCYTIC LEUKAEMIA
     Dosage: A TOTAL OF 0.9 MG/M2 DURING COURSE 1 FRACTIONATED INTO 0.6 MG/M2 ON DAY 2 AND 0.3 MG/M2 ON DAY 8 OF
  4. METHOTREXATE SODIUM. [Suspect]
     Active Substance: METHOTREXATE SODIUM
     Indication: ACUTE LYMPHOCYTIC LEUKAEMIA
     Dosage: 250 MG/M2 ON DAY 1 (75% DOSE REDUCTION)
  5. CYTARABINE. [Suspect]
     Active Substance: CYTARABINE
     Indication: ACUTE LYMPHOCYTIC LEUKAEMIA
     Dosage: 0.5 G/M2 EVERY 12 HOURS ON DAYS 2 AND 3 (83% DOSE REDUCTION)
  6. DEXAMETHASONE. [Suspect]
     Active Substance: DEXAMETHASONE
     Indication: ACUTE LYMPHOCYTIC LEUKAEMIA
     Dosage: 20 MG/D ON DAYS 1?4 AND 11?14 GIVEN AT A 50% DOSE REDUCTION
  7. BLINATUMOMAB [Suspect]
     Active Substance: BLINATUMOMAB
     Indication: ACUTE LYMPHOCYTIC LEUKAEMIA
     Dosage: STANDARD DOSE OF 9 UG/D IN THE FIRST 4 DAYS OF THE FIRST COURSE; THE DOSE WAS THEN ESCALATED TO 28 U
     Route: 042

REACTIONS (1)
  - Venoocclusive liver disease [Fatal]
